FAERS Safety Report 11345017 (Version 1)
Quarter: 2015Q3

REPORT INFORMATION
  Report Type: Spontaneous
  Country: US (occurrence: US)
  Receive Date: 20150806
  Receipt Date: 20150806
  Transmission Date: 20151125
  Serious: Yes (Other)
  Sender: FDA-Public Use
  Company Number: US-TEVA-573587USA

PATIENT
  Sex: Female

DRUGS (1)
  1. AZITHROMYCIN [Suspect]
     Active Substance: AZITHROMYCIN ANHYDROUS
     Indication: SINUSITIS BACTERIAL
     Route: 065
     Dates: start: 20150603, end: 20150608

REACTIONS (5)
  - Abasia [Unknown]
  - Headache [Unknown]
  - Tinnitus [Unknown]
  - Hypoacusis [Unknown]
  - Emotional distress [Unknown]
